FAERS Safety Report 8923475 (Version 1)
Quarter: 2012Q4

REPORT INFORMATION
  Report Type: 
  Country: US (occurrence: US)
  Receive Date: 20121123
  Receipt Date: 20121123
  Transmission Date: 20130627
  Serious: No
  Sender: FDA-Public Use
  Company Number: US-BAYER-2012-120825

PATIENT
  Age: 52 Year
  Sex: Female
  Weight: 79 kg

DRUGS (3)
  1. ALEVE CAPLET/TABLET,MIDOL EXTENDED RELIEF CAPLET [Suspect]
     Dosage: 2 DF, QD
     Route: 048
     Dates: start: 1994
  2. ATENOLOL [Concomitant]
  3. MULTIVITAMIN [Concomitant]

REACTIONS (5)
  - Throat irritation [Recovered/Resolved]
  - Glossodynia [Recovered/Resolved]
  - Hypoaesthesia oral [Recovered/Resolved]
  - Inappropriate schedule of drug administration [None]
  - Incorrect drug administration duration [None]
